FAERS Safety Report 7619013-1 (Version None)
Quarter: 2011Q3

REPORT INFORMATION
  Report Type: 
  Country: None (occurrence: None)
  Receive Date: 20110718
  Receipt Date: 20110708
  Transmission Date: 20111222
  Serious: Yes (Hospitalization)
  Sender: FDA-Public Use
  Company Number: JP-ABBOTT-11P-087-0715144-00

PATIENT
  Sex: Female
  Weight: 47 kg

DRUGS (21)
  1. MECOBALAMIN [Concomitant]
     Indication: PRODUCT USED FOR UNKNOWN INDICATION
     Dosage: 1500 MCG DAILY
     Route: 048
     Dates: start: 20110208
  2. ANTI-HEMORRHOID DRUG [Concomitant]
     Indication: PRODUCT USED FOR UNKNOWN INDICATION
     Route: 061
  3. POVIDONE IODINE [Concomitant]
     Indication: PRODUCT USED FOR UNKNOWN INDICATION
  4. LOXOPROFEN SODIUM HYDRATE [Concomitant]
     Indication: PAIN
     Route: 048
     Dates: start: 20110124
  5. RABEPRAZOLE SODIUM [Concomitant]
     Indication: PROPHYLAXIS AGAINST GASTROINTESTINAL ULCER
     Route: 048
  6. HUMIRA [Suspect]
     Indication: CROHN'S DISEASE
     Dosage: 160 MG ONCE
     Route: 058
     Dates: start: 20110208, end: 20110208
  7. HUMIRA [Suspect]
     Dates: start: 20110308, end: 20110308
  8. CHINESE HERBAL MEDICINE (SHAKUYAKUKANZOTO) [Concomitant]
     Indication: PRODUCT USED FOR UNKNOWN INDICATION
     Route: 048
     Dates: start: 20110208
  9. ANTIBIOTICS-RESISTANT LACTIC ACID BACTERIAE [Concomitant]
     Indication: DIARRHOEA
     Route: 048
  10. POTASSIUM CHLORIDE [Concomitant]
     Indication: HYPOKALAEMIA
     Route: 048
     Dates: start: 20110204
  11. COLIBACILLUS VACCINE_HYDROCORTISONE [Concomitant]
     Indication: PAIN
     Route: 061
  12. SPIRONOLACTONE [Concomitant]
     Indication: PRODUCT USED FOR UNKNOWN INDICATION
     Dosage: 5MG DAILY
     Route: 048
     Dates: start: 20110314
  13. METOCLOPRAMIDE [Concomitant]
     Indication: NAUSEA
     Route: 048
  14. CROTAMITON [Concomitant]
     Indication: PRODUCT USED FOR UNKNOWN INDICATION
     Route: 061
  15. FLUNITRAZEPAM [Concomitant]
     Indication: DEPRESSION
     Route: 048
  16. TRAZODONE HYDROCHLORIDE [Concomitant]
     Indication: DEPRESSION
     Route: 048
  17. CELECOXIB [Concomitant]
     Indication: PRODUCT USED FOR UNKNOWN INDICATION
     Dosage: 400MG DAILY
     Route: 048
  18. LOXOPROFEN SODIUM HYDRATE [Concomitant]
     Indication: PYREXIA
     Route: 061
  19. HUMIRA [Suspect]
     Dates: end: 20110228
  20. LEVOMEPROMAZINE [Concomitant]
     Indication: INSOMNIA
     Route: 048
  21. KETOPROFEN [Concomitant]
     Indication: PAIN
     Route: 061

REACTIONS (7)
  - LIVER DISORDER [None]
  - MELAENA [None]
  - C-REACTIVE PROTEIN INCREASED [None]
  - GASTROINTESTINAL HAEMORRHAGE [None]
  - RECTAL ULCER HAEMORRHAGE [None]
  - BLOOD ALBUMIN DECREASED [None]
  - ASCITES [None]
